FAERS Safety Report 4751427-X (Version None)
Quarter: 2005Q3

REPORT INFORMATION
  Report Type: 
  Country: None (occurrence: None)
  Receive Date: 20050824
  Receipt Date: 20050817
  Transmission Date: 20060218
  Serious: Yes (Other)
  Sender: FDA-Public Use
  Company Number: 200516254US

PATIENT
  Sex: 0

DRUGS (1)
  1. LOVENOX [Suspect]
     Indication: THROMBOSIS PROPHYLAXIS
     Dosage: DOSE: UNK

REACTIONS (2)
  - LEG AMPUTATION [None]
  - POST PROCEDURAL HAEMORRHAGE [None]
